FAERS Safety Report 9013104 (Version 1)
Quarter: 2013Q1

REPORT INFORMATION
  Report Type: Spontaneous
  Country: US (occurrence: US)
  Receive Date: 20130114
  Receipt Date: 20130114
  Transmission Date: 20140127
  Serious: Yes (Other)
  Sender: FDA-Public Use
  Company Number: US-009507513-1301USA004141

PATIENT
  Sex: Female

DRUGS (13)
  1. SINGULAIR [Suspect]
  2. NEXIUM [Suspect]
  3. FLEXERIL [Suspect]
     Route: 050
  4. FLOVENT [Suspect]
  5. SEROQUEL [Suspect]
  6. BUSPAR [Suspect]
  7. ABILIFY [Suspect]
  8. LEVOTHROID [Suspect]
  9. TRAMADOL HYDROCHLORIDE [Suspect]
  10. EFFEXOR [Suspect]
  11. LITHIUM CARBONATE [Suspect]
  12. NEURONTIN [Suspect]
  13. ATROVENT HFA [Suspect]

REACTIONS (2)
  - Hypothyroidism [Unknown]
  - Drug interaction [Unknown]
